FAERS Safety Report 16676915 (Version 3)
Quarter: 2019Q3

REPORT INFORMATION
  Report Type: Spontaneous
  Country: US (occurrence: US)
  Receive Date: 20190807
  Receipt Date: 20190925
  Transmission Date: 20191004
  Serious: No
  Sender: FDA-Public Use
  Company Number: US-ASTRAZENECA-2019SF11768

PATIENT
  Sex: Male

DRUGS (4)
  1. BYDUREON BCISE [Suspect]
     Active Substance: EXENATIDE
     Dosage: ONCE A WEEK
     Route: 065
  2. TESTOSTERONE. [Concomitant]
     Active Substance: TESTOSTERONE
  3. METFORMIN [Concomitant]
     Active Substance: METFORMIN HYDROCHLORIDE
  4. TRESEBA [Concomitant]
     Dosage: 70USP UNITS DAILY
     Route: 065

REACTIONS (5)
  - Drug ineffective [Unknown]
  - Device issue [Unknown]
  - Device leakage [Unknown]
  - Dizziness postural [Unknown]
  - Glycosylated haemoglobin increased [Unknown]
